FAERS Safety Report 9638807 (Version 1)
Quarter: 2013Q4

REPORT INFORMATION
  Report Type: Spontaneous
  Country: US (occurrence: US)
  Receive Date: 20131022
  Receipt Date: 20131022
  Transmission Date: 20140711
  Serious: No
  Sender: FDA-Public Use
  Company Number: US-BRISTOL-MYERS SQUIBB COMPANY-19376946

PATIENT
  Age: 77 Year
  Sex: Male
  Weight: 90.7 kg

DRUGS (4)
  1. ELIQUIS [Suspect]
     Indication: ATRIAL FIBRILLATION
     Dosage: 5 MG TABLET
     Dates: start: 201306
  2. ATORVASTATIN [Concomitant]
  3. LAMOTRIGINE [Concomitant]
  4. LEVOTHYROXINE [Concomitant]

REACTIONS (3)
  - Rash erythematous [Recovering/Resolving]
  - Dry eye [Unknown]
  - Hearing impaired [Unknown]
